FAERS Safety Report 8575531-3 (Version None)
Quarter: 2012Q3

REPORT INFORMATION
  Report Type: 
  Country: None (occurrence: None)
  Receive Date: 20120807
  Receipt Date: 20120801
  Transmission Date: 20120928
  Serious: Yes (Hospitalization)
  Sender: FDA-Public Use
  Company Number: PHHY2012LB067278

PATIENT

DRUGS (7)
  1. ASPOCID [Concomitant]
  2. ALDACTONE [Concomitant]
  3. LASIX [Concomitant]
  4. VASTAREL ^BIOPHARMA^ [Concomitant]
  5. CORDARONE [Concomitant]
  6. TASIGNA [Suspect]
     Indication: CHRONIC MYELOID LEUKAEMIA
     Dosage: 800 MG, QD
     Route: 048
     Dates: start: 20080101
  7. DIAMINE PENICILLIN [Concomitant]

REACTIONS (4)
  - HYPOTENSION [None]
  - VISION BLURRED [None]
  - TACHYCARDIA [None]
  - SWELLING FACE [None]
